FAERS Safety Report 8648982 (Version 4)
Quarter: 2012Q4

REPORT INFORMATION
  Report Type: 
  Country: US (occurrence: US)
  Receive Date: 20120704
  Receipt Date: 20121010
  Transmission Date: 20130627
  Serious: Yes (Death, Life-Threatening, Hospitalization)
  Sender: FDA-Public Use
  Company Number: PHEH2012US013152

PATIENT
  Sex: Female

DRUGS (14)
  1. RECLAST [Suspect]
     Route: 042
  2. ARAVA [Concomitant]
     Dosage: 20 mg, QD
  3. PREDNISONE [Concomitant]
     Dosage: 15 mg, QD
  4. IMURAN [Concomitant]
     Dosage: 50 mg, BID
  5. LISINOPRIL [Concomitant]
  6. PRILOSEC [Concomitant]
  7. PROZAC [Concomitant]
  8. ALDACTONE [Concomitant]
  9. TRAMADOL [Concomitant]
  10. TRAZODONE [Concomitant]
  11. ZYRTEC [Concomitant]
  12. SINGULAIR [Concomitant]
  13. MAGNESIUM [Concomitant]
  14. CALCIUM [Concomitant]

REACTIONS (20)
  - Death [Fatal]
  - Acidosis [Unknown]
  - Peripheral ischaemia [Unknown]
  - Oedema peripheral [Unknown]
  - Pain in extremity [Unknown]
  - Gait disturbance [Unknown]
  - Arthralgia [Unknown]
  - Livedo reticularis [Unknown]
  - Pain [Unknown]
  - Erythema [Unknown]
  - Bacterial sepsis [Unknown]
  - Infection in an immunocompromised host [Unknown]
  - Lactic acidosis [Unknown]
  - Cardiomyopathy [Unknown]
  - Ejection fraction decreased [Unknown]
  - Renal failure acute [Unknown]
  - Anuria [Unknown]
  - Hypotension [Unknown]
  - Atrial fibrillation [Unknown]
  - Tachycardia [Unknown]
